FAERS Safety Report 10185513 (Version 3)
Quarter: 2014Q2

REPORT INFORMATION
  Report Type: Spontaneous
  Country: US (occurrence: US)
  Receive Date: 20140521
  Receipt Date: 20140606
  Transmission Date: 20141212
  Serious: Yes (Hospitalization, Other)
  Sender: FDA-Public Use
  Company Number: US-US-EMD SERONO, INC.-238108J08USA

PATIENT
  Age: 55 Year
  Sex: Male
  Weight: 58 kg

DRUGS (6)
  1. REBIF [Suspect]
     Indication: MULTIPLE SCLEROSIS
     Route: 058
     Dates: start: 20050724, end: 20140509
  2. REBIF [Suspect]
     Route: 058
     Dates: start: 20140523
  3. CELEXA [Concomitant]
     Indication: PRODUCT USED FOR UNKNOWN INDICATION
  4. HYDROCODONE [Concomitant]
     Indication: PAIN
  5. SIMVASTATIN [Concomitant]
     Indication: BLOOD CHOLESTEROL INCREASED
  6. LISINOPRIL [Concomitant]
     Indication: HYPERTENSION

REACTIONS (8)
  - Renal impairment [Recovered/Resolved]
  - Prostatomegaly [Recovered/Resolved]
  - Urinary tract infection [Recovering/Resolving]
  - Immunodeficiency [Unknown]
  - Thrombosis [Unknown]
  - Glomerulonephritis membranous [Recovering/Resolving]
  - Clostridium difficile infection [Recovered/Resolved]
  - Peptic ulcer helicobacter [Unknown]
